FAERS Safety Report 24412078 (Version 2)
Quarter: 2025Q3

REPORT INFORMATION
  Report Type: Report from Study
  Country: SA (occurrence: SA)
  Receive Date: 20241008
  Receipt Date: 20250802
  Transmission Date: 20251021
  Serious: Yes (Other)
  Sender: ALEXION PHARMACEUTICALS
  Company Number: SA-AstraZeneca-2024A213298

PATIENT
  Age: 48 Year
  Sex: Female

DRUGS (1)
  1. FASENRA [Suspect]
     Active Substance: BENRALIZUMAB
     Indication: Asthma
     Dosage: 30 MILLIGRAM, QMONTH
     Dates: start: 20200101

REACTIONS (3)
  - Off label use [Unknown]
  - Hormone level abnormal [Unknown]
  - Drug ineffective [Unknown]
